FAERS Safety Report 17765080 (Version 1)
Quarter: 2020Q2

REPORT INFORMATION
  Report Type: Report from Study
  Country: US (occurrence: US)
  Receive Date: 20200511
  Receipt Date: 20200511
  Transmission Date: 20200714
  Serious: Yes (Hospitalization, Other)
  Sender: FDA-Public Use
  Company Number: US-ACCORD-180528

PATIENT
  Age: 61 Year
  Sex: Male

DRUGS (2)
  1. ACETYLSALICYLIC ACID [Suspect]
     Active Substance: ASPIRIN
     Indication: PRODUCT USED FOR UNKNOWN INDICATION
     Route: 048
  2. CLOPIDOGREL [Suspect]
     Active Substance: CLOPIDOGREL BISULFATE
     Indication: PRODUCT USED FOR UNKNOWN INDICATION
     Dosage: BOLUS OF 300 MG FOLLOWED BY 75 MG/DAY) 3 DAYS BEFORE THE PROCEDURE
     Route: 048

REACTIONS (2)
  - Cerebral infarction [Unknown]
  - Haemorrhagic cerebral infarction [Unknown]
